FAERS Safety Report 5381880-2 (Version None)
Quarter: 2007Q2

REPORT INFORMATION
  Report Type: 
  Country: None (occurrence: None)
  Receive Date: 20070629
  Receipt Date: 20070215
  Transmission Date: 20071010
  Serious: No
  Sender: FDA-Public Use
  Company Number: PHEH2007US02065

PATIENT
  Age: 5 Year
  Sex: Female

DRUGS (1)
  1. EXJADE [Suspect]
     Indication: IRON OVERLOAD
     Dosage: 325 MG, QD, ORAL
     Route: 048
     Dates: start: 20061201

REACTIONS (2)
  - ENURESIS [None]
  - FATIGUE [None]
